FAERS Safety Report 6970551-4 (Version None)
Quarter: 2010Q3

REPORT INFORMATION
  Report Type: 
  Country: None (occurrence: None)
  Receive Date: 20100908
  Receipt Date: 20100830
  Transmission Date: 20110219
  Serious: Yes (Hospitalization)
  Sender: FDA-Public Use
  Company Number: DE-CEPHALON-2010004738

PATIENT
  Sex: Male
  Weight: 65 kg

DRUGS (3)
  1. TREANDA [Suspect]
     Indication: LYMPHOMA
     Route: 042
     Dates: start: 20100728, end: 20100826
  2. RITUXIMAB [Suspect]
     Indication: LYMPHOMA
     Route: 042
     Dates: start: 20100727, end: 20100824
  3. TEMSIROLIMUS [Suspect]
     Indication: LYMPHOMA
     Dates: start: 20100729, end: 20100826

REACTIONS (1)
  - HYPERTENSIVE CRISIS [None]
